FAERS Safety Report 9744160 (Version 1)
Quarter: 2013Q4

REPORT INFORMATION
  Report Type: Spontaneous
  Country: US (occurrence: US)
  Receive Date: 20131210
  Receipt Date: 20131210
  Transmission Date: 20140711
  Serious: Yes (Other)
  Sender: FDA-Public Use
  Company Number: US-PFIZER INC-2013351586

PATIENT
  Sex: Female

DRUGS (2)
  1. LYRICA [Suspect]
     Dosage: 150 MG, UNK
     Dates: start: 201302, end: 201307
  2. LYRICA [Suspect]
     Dosage: 225 MG, UNK
     Dates: start: 201307

REACTIONS (6)
  - Weight increased [Unknown]
  - Heart rate increased [Unknown]
  - Endometriosis [Unknown]
  - Ovarian disorder [Unknown]
  - Blood cholesterol increased [Unknown]
  - Infection [Unknown]
